FAERS Safety Report 8486285-3 (Version None)
Quarter: 2012Q3

REPORT INFORMATION
  Report Type: 
  Country: None (occurrence: None)
  Receive Date: 20120703
  Receipt Date: 20120622
  Transmission Date: 20120928
  Serious: Yes (Death, Hospitalization)
  Sender: FDA-Public Use
  Company Number: US-GLAXOSMITHKLINE-A0753732A

PATIENT
  Age: 65 Year
  Sex: Male
  Weight: 159.1 kg

DRUGS (10)
  1. AVANDIA [Suspect]
     Indication: DIABETES MELLITUS
     Dosage: 4MG PER DAY
     Route: 048
     Dates: start: 20020101, end: 20060901
  2. NORVASC [Concomitant]
  3. ZOCOR [Concomitant]
  4. ALTACE [Concomitant]
  5. ATENOLOL [Concomitant]
  6. NASACORT [Concomitant]
  7. THEOPHYLLINE [Concomitant]
  8. GLYBURIDE [Concomitant]
  9. INDAPAMIDE [Concomitant]
  10. FLOVENT [Concomitant]

REACTIONS (3)
  - DEATH [None]
  - MYOCARDIAL INFARCTION [None]
  - SUDDEN CARDIAC DEATH [None]
